FAERS Safety Report 12872661 (Version 2)
Quarter: 2017Q1

REPORT INFORMATION
  Report Type: Spontaneous
  Country: US (occurrence: US)
  Receive Date: 20161021
  Receipt Date: 20170113
  Transmission Date: 20170428
  Serious: Yes (Hospitalization)
  Sender: FDA-Public Use
  Company Number: US-BAUSCH-BL-2016-025553

PATIENT
  Age: 29 Year
  Sex: Male

DRUGS (2)
  1. CUPRIMINE [Suspect]
     Active Substance: PENICILLAMINE
     Indication: HEPATO-LENTICULAR DEGENERATION
     Route: 048
  2. CUPRIMINE [Suspect]
     Active Substance: PENICILLAMINE
     Dosage: INCREASED DOSE 750 MG PER DAY
     Route: 048

REACTIONS (2)
  - Condition aggravated [Not Recovered/Not Resolved]
  - Hepato-lenticular degeneration [Not Recovered/Not Resolved]

NARRATIVE: CASE EVENT DATE: 20161010
